FAERS Safety Report 19025164 (Version 4)
Quarter: 2021Q3

REPORT INFORMATION
  Report Type: Spontaneous
  Country: GB (occurrence: GB)
  Receive Date: 20210318
  Receipt Date: 20210707
  Transmission Date: 20211014
  Serious: Yes (Hospitalization, Other)
  Sender: FDA-Public Use
  Company Number: GB-TEVA-2019-GB-1013432

PATIENT
  Age: 24 Year
  Sex: Male

DRUGS (18)
  1. OLANZAPINE. [Suspect]
     Active Substance: OLANZAPINE
     Indication: PRODUCT USED FOR UNKNOWN INDICATION
     Dosage: UNK
     Route: 065
  2. QUETIAPINE. [Concomitant]
     Active Substance: QUETIAPINE
     Dosage: 10 ML DAILY; 10 MILLILITER, AM , THERAPY START DATE AND END DATE : NASK
     Route: 065
  3. SODIUM VALPROATE [Concomitant]
     Active Substance: VALPROATE SODIUM
     Dosage: 25 MILLIMOL DAILY; PM , THERAPY START DATE AND END DATE: ASKED BUT UNKNOWN
     Route: 065
  4. CLONAZEPAM. [Concomitant]
     Active Substance: CLONAZEPAM
     Indication: PRODUCT USED FOR UNKNOWN INDICATION
     Dosage: 2.5 ML DAILY;
     Route: 048
  5. LI LIQUID [Concomitant]
     Indication: PRODUCT USED FOR UNKNOWN INDICATION
     Dosage: 15 MILLILITER (600MG), HS (NIGHT) , UNIT DOSE : 15 ML
     Route: 005
  6. QUETIAPINE. [Concomitant]
     Active Substance: QUETIAPINE
     Dosage: 10 ML DAILY; THERAPY START DATE AND END DATE : NASK
     Route: 065
  7. SODIUM VALPROATE [Concomitant]
     Active Substance: VALPROATE SODIUM
     Indication: PRODUCT USED FOR UNKNOWN INDICATION
     Dosage: 18.75 MILLIMOL DAILY; AM
     Route: 065
  8. SODIUM VALPROATE [Concomitant]
     Active Substance: VALPROATE SODIUM
     Dosage: 18.75 MILLIMOL DAILY;
     Route: 065
  9. CLOZARIL [Suspect]
     Active Substance: CLOZAPINE
     Indication: SCHIZOPHRENIA
     Dosage: UNK,QD (UNK, DAILY)
     Route: 048
     Dates: start: 20181212, end: 20181231
  10. QUETIAPINE. [Concomitant]
     Active Substance: QUETIAPINE
     Indication: PRODUCT USED FOR UNKNOWN INDICATION
     Dosage: 20 MILLIMOL DAILY;  PM , THERAPY START DATE AND END DATE : NASK
     Route: 065
  11. CLOZARIL [Suspect]
     Active Substance: CLOZAPINE
     Dosage: UNK
     Route: 048
     Dates: start: 20181115
  12. LITHIUM CITRATE. [Concomitant]
     Active Substance: LITHIUM CITRATE
     Dosage: 15 ML DAILY; 15ML (600 MG) NOCTE, QD , THERAPY START DATE : NASK
     Route: 005
  13. LITHIUM CITRATE. [Concomitant]
     Active Substance: LITHIUM CITRATE
     Dosage: 15 ML DAILY; 15 MILLILITER (600 MG),THERAPY START DATE AND END DATE: NASK
     Route: 005
  14. QUETIAPINE. [Concomitant]
     Active Substance: QUETIAPINE
     Dosage: 20 ML DAILY; THERAPY START DATE AND END DATE : NASK
     Route: 065
  15. CLOZARIL [Suspect]
     Active Substance: CLOZAPINE
     Route: 048
     Dates: start: 20191120, end: 20191202
  16. LITHIUM CITRATE. [Concomitant]
     Active Substance: LITHIUM CITRATE
     Dosage: 1 DOSAGE FORMS DAILY; THERAPY START DATE AND END DATE: NASK
     Route: 005
  17. LI LIQUID [Concomitant]
     Dosage: 1 DOSAGE FORMS DAILY; 1 DF, QD (PM) , THERAPY START DATE AND END DATE : ASKED BUT UNKNOWN
     Route: 005
  18. LITHIUM CITRATE. [Concomitant]
     Active Substance: LITHIUM CITRATE
     Indication: PRODUCT USED FOR UNKNOWN INDICATION
     Dosage: 1 DOSAGE FORMS DAILY;   (PM), THERAPY START DATE AND END DATE: NASK
     Route: 005

REACTIONS (9)
  - Aggression [Unknown]
  - Eosinophilia [Recovered/Resolved]
  - White blood cell count increased [Recovered/Resolved]
  - Abnormal behaviour [Unknown]
  - White blood cell count decreased [Recovered/Resolved]
  - Drug ineffective [Unknown]
  - Neutrophil count increased [Recovered/Resolved]
  - Malaise [Unknown]
  - Neutropenia [Recovered/Resolved]

NARRATIVE: CASE EVENT DATE: 201811
